FAERS Safety Report 7481993-5 (Version None)
Quarter: 2011Q2

REPORT INFORMATION
  Report Type: 
  Country: None (occurrence: None)
  Receive Date: 20110516
  Receipt Date: 20110510
  Transmission Date: 20111010
  Serious: Yes (Hospitalization)
  Sender: FDA-Public Use
  Company Number: US-ABBOTT-11P-163-0724836-00

PATIENT
  Sex: Male
  Weight: 75.364 kg

DRUGS (7)
  1. ANTIBIOTICS [Suspect]
     Route: 042
     Dates: start: 20091101
  2. HUMIRA [Suspect]
     Indication: CROHN'S DISEASE
  3. HUMIRA [Suspect]
     Indication: RHEUMATOID ARTHRITIS
     Dates: end: 20110408
  4. MORPHINE [Concomitant]
     Indication: COMPLEX REGIONAL PAIN SYNDROME
  5. HUMIRA [Suspect]
     Indication: CROHN'S DISEASE
     Dates: start: 20050101
  6. HUMIRA [Suspect]
     Indication: RHEUMATOID ARTHRITIS
  7. MORPHINE [Concomitant]
     Indication: COMPLEX REGIONAL PAIN SYNDROME

REACTIONS (8)
  - VASCULITIS [None]
  - DRUG INEFFECTIVE [None]
  - RHEUMATOID ARTHRITIS [None]
  - ABASIA [None]
  - OEDEMA PERIPHERAL [None]
  - CONTUSION [None]
  - PYODERMA GANGRENOSUM [None]
  - PAIN IN EXTREMITY [None]
